FAERS Safety Report 8366318-5 (Version None)
Quarter: 2012Q2

REPORT INFORMATION
  Report Type: 
  Country: None (occurrence: None)
  Receive Date: 20120517
  Receipt Date: 20120515
  Transmission Date: 20120825
  Serious: Yes (Other)
  Sender: FDA-Public Use
  Company Number: PHFR2012GB000556

PATIENT
  Sex: Male

DRUGS (4)
  1. ZOMETA [Suspect]
     Indication: PROSTATE CANCER
     Dosage: 3 MG, UNK
     Route: 042
     Dates: start: 20070601, end: 20100501
  2. ZOLADEX [Concomitant]
     Dosage: 3.6 MG, UNK
     Route: 058
     Dates: start: 20020101
  3. MOVIPREP [Concomitant]
  4. OXYCONTIN [Concomitant]

REACTIONS (1)
  - OSTEONECROSIS OF JAW [None]
